FAERS Safety Report 24578678 (Version 1)
Quarter: 2024Q4

REPORT INFORMATION
  Report Type: Spontaneous
  Country: MY (occurrence: MY)
  Receive Date: 20241105
  Receipt Date: 20241105
  Transmission Date: 20250115
  Serious: Yes (Other)
  Sender: AMGEN
  Company Number: MY-AMGEN-MYSSP2024215387

PATIENT
  Age: 32 Year
  Sex: Male

DRUGS (3)
  1. ADALIMUMAB [Suspect]
     Active Substance: ADALIMUMAB
     Indication: Crohn^s disease
     Dosage: UNK
     Route: 065
  2. MESALAMINE [Concomitant]
     Active Substance: MESALAMINE
  3. AZATHIOPRINE [Concomitant]
     Active Substance: AZATHIOPRINE

REACTIONS (8)
  - Polyarteritis nodosa [Unknown]
  - Acute kidney injury [Unknown]
  - Pneumonia [Unknown]
  - Pulmonary embolism [Unknown]
  - Sinus tachycardia [Unknown]
  - Microcytic anaemia [Unknown]
  - Hilar lymphadenopathy [Unknown]
  - Hyperaesthesia [Unknown]
